FAERS Safety Report 7085776-X (Version None)
Quarter: 2010Q4

REPORT INFORMATION
  Report Type: 
  Country: None (occurrence: None)
  Receive Date: 20101001
  Receipt Date: 20100804
  Transmission Date: 20110411
  Serious: No
  Sender: FDA-Public Use
  Company Number: 1000015486

PATIENT
  Age: 79 Year
  Sex: Male
  Weight: 68.18 kg

DRUGS (11)
  1. BYSTOLIC [Suspect]
     Indication: HYPERTENSION
     Dosage: 5 MG (5 MG, 1 IN 1 ), ORAL, 2.5 MG (2.5 MG, 1 IN 1 D), ORAL, 1.25 MG (1.25 MG, 1 IN 1 D), ORAL
     Route: 048
     Dates: start: 20100715, end: 20100726
  2. BYSTOLIC [Suspect]
     Indication: HYPERTENSION
     Dosage: 5 MG (5 MG, 1 IN 1 ), ORAL, 2.5 MG (2.5 MG, 1 IN 1 D), ORAL, 1.25 MG (1.25 MG, 1 IN 1 D), ORAL
     Route: 048
     Dates: start: 20100727, end: 20100802
  3. BYSTOLIC [Suspect]
     Indication: HYPERTENSION
     Dosage: 5 MG (5 MG, 1 IN 1 ), ORAL, 2.5 MG (2.5 MG, 1 IN 1 D), ORAL, 1.25 MG (1.25 MG, 1 IN 1 D), ORAL
     Route: 048
     Dates: start: 20100803
  4. CARDURA [Concomitant]
  5. WARFARIN [Concomitant]
  6. PACERONE [Concomitant]
  7. LEVOTHYROXINE [Concomitant]
  8. ALLOPURINOL [Concomitant]
  9. VITAMINS [Concomitant]
  10. FLAX SEED OIL [Concomitant]
  11. FISH OIL [Concomitant]

REACTIONS (4)
  - DIZZINESS [None]
  - LETHARGY [None]
  - NAUSEA [None]
  - SOMNOLENCE [None]
